FAERS Safety Report 20791197 (Version 3)
Quarter: 2022Q2

REPORT INFORMATION
  Report Type: Report from Study
  Country: US (occurrence: US)
  Receive Date: 20220505
  Receipt Date: 20220524
  Transmission Date: 20220721
  Serious: Yes (Other)
  Sender: FDA-Public Use
  Company Number: US-NOVARTISPH-NVSC2022US101150

PATIENT
  Age: 66 Year
  Sex: Male

DRUGS (2)
  1. ENTRESTO [Suspect]
     Active Substance: SACUBITRIL\VALSARTAN
     Indication: Cardiac failure
     Dosage: 1 DOSAGE FORM, BID (24/26 MG)
     Route: 048
     Dates: start: 20220415, end: 20220516
  2. METOPROLOL [Concomitant]
     Active Substance: METOPROLOL
     Indication: Product used for unknown indication
     Dosage: UNK (SPLITTING DOSES OF METOPROLOL)
     Route: 065

REACTIONS (8)
  - Heart rate decreased [Recovering/Resolving]
  - Constipation [Not Recovered/Not Resolved]
  - Somnolence [Unknown]
  - Back pain [Recovered/Resolved]
  - Blood pressure fluctuation [Unknown]
  - Fatigue [Unknown]
  - Headache [Unknown]
  - Dizziness [Unknown]

NARRATIVE: CASE EVENT DATE: 20220401
